FAERS Safety Report 22289083 (Version 1)
Quarter: 2023Q2

REPORT INFORMATION
  Report Type: Spontaneous
  Country: FR (occurrence: FR)
  Receive Date: 20230505
  Receipt Date: 20230505
  Transmission Date: 20230722
  Serious: Yes (Disabling, Other)
  Sender: FDA-Public Use
  Company Number: FR-ORGANON-O2305FRA000199

PATIENT
  Age: 43 Year
  Sex: Female

DRUGS (1)
  1. NEXPLANON [Suspect]
     Active Substance: ETONOGESTREL
     Dosage: 1 IMPLANT
     Route: 059
     Dates: start: 20160202, end: 20211209

REACTIONS (12)
  - Surgery [Unknown]
  - Surgery [Unknown]
  - Device dislocation [Recovered/Resolved]
  - Device issue [Recovered/Resolved]
  - Paraesthesia [Not Recovered/Not Resolved]
  - Paraesthesia ear [Unknown]
  - Pain [Unknown]
  - Limb deformity [Unknown]
  - Limb injury [Unknown]
  - Complication associated with device [Recovered/Resolved]
  - Complication of device removal [Recovered/Resolved]
  - Incorrect product administration duration [Unknown]

NARRATIVE: CASE EVENT DATE: 20190201
